FAERS Safety Report 7690291-6 (Version None)
Quarter: 2011Q3

REPORT INFORMATION
  Report Type: 
  Country: None (occurrence: None)
  Receive Date: 20110818
  Receipt Date: 20110808
  Transmission Date: 20111222
  Serious: Yes (Other)
  Sender: FDA-Public Use
  Company Number: US-ELI_LILLY_AND_COMPANY-US201108004335

PATIENT
  Sex: Male

DRUGS (2)
  1. HUMALOG [Suspect]
     Indication: TYPE 1 DIABETES MELLITUS
     Dosage: 10 U, OTHER
  2. HUMALOG [Suspect]
     Dosage: UNK UNK, PRN

REACTIONS (6)
  - SOMNOLENCE [None]
  - EYE DISORDER [None]
  - DRUG INEFFECTIVE [None]
  - EYE PAIN [None]
  - LOSS OF CONSCIOUSNESS [None]
  - BLOOD GLUCOSE INCREASED [None]
